FAERS Safety Report 7519775-8 (Version None)
Quarter: 2011Q2

REPORT INFORMATION
  Report Type: 
  Country: None (occurrence: None)
  Receive Date: 20110602
  Receipt Date: 20110524
  Transmission Date: 20111010
  Serious: Yes (Death, Other)
  Sender: FDA-Public Use
  Company Number: IT-BAXTER-2011BH017899

PATIENT

DRUGS (8)
  1. METHOTREXATE [Suspect]
     Indication: B-CELL LYMPHOMA
     Route: 065
  2. ETOPOSIDE [Suspect]
     Indication: B-CELL LYMPHOMA
     Route: 065
  3. ETOPOSIDE [Suspect]
     Indication: METASTASES TO CENTRAL NERVOUS SYSTEM
     Route: 065
  4. CYCLOPHOSPHAMIDE [Suspect]
     Indication: B-CELL LYMPHOMA
     Route: 065
  5. METHOTREXATE [Suspect]
     Indication: METASTASES TO CENTRAL NERVOUS SYSTEM
     Route: 065
  6. CYTARABINE [Suspect]
     Indication: METASTASES TO CENTRAL NERVOUS SYSTEM
     Route: 065
  7. CYCLOPHOSPHAMIDE [Suspect]
     Indication: METASTASES TO CENTRAL NERVOUS SYSTEM
     Route: 065
  8. CYTARABINE [Suspect]
     Indication: B-CELL LYMPHOMA
     Route: 065

REACTIONS (2)
  - HAEMATOTOXICITY [None]
  - SEPSIS [None]
